FAERS Safety Report 6111038-0 (Version None)
Quarter: 2009Q1

REPORT INFORMATION
  Report Type: 
  Country: None (occurrence: None)
  Receive Date: 20090306
  Receipt Date: 20090225
  Transmission Date: 20090719
  Serious: Yes (Hospitalization)
  Sender: FDA-Public Use
  Company Number: 2009-00726

PATIENT
  Age: 68 Year
  Sex: Female
  Weight: 67.6 kg

DRUGS (1)
  1. VELCADE [Suspect]
     Indication: MULTIPLE MYELOMA
     Dosage: INTRAVENOUS
     Route: 042
     Dates: start: 20090216

REACTIONS (4)
  - BLOOD VISCOSITY INCREASED [None]
  - HEPATIC FAILURE [None]
  - PANCYTOPENIA [None]
  - RENAL FAILURE [None]
